FAERS Safety Report 21623872 (Version 1)
Quarter: 2022Q4

REPORT INFORMATION
  Report Type: Other
  Country: None (occurrence: TR)
  Receive Date: 20221121
  Receipt Date: 20221121
  Transmission Date: 20230112
  Serious: Yes (Life-Threatening)
  Sender: FDA-Public Use
  Company Number: TR-Vitruvias Therapeutics-2135119

PATIENT
  Age: 24 Year
  Sex: Female
  Weight: 42 kg

DRUGS (1)
  1. LIDOCAINE [Suspect]
     Active Substance: LIDOCAINE

REACTIONS (1)
  - Ischaemic stroke [Recovered/Resolved]
